FAERS Safety Report 8337092-3 (Version None)
Quarter: 2012Q2

REPORT INFORMATION
  Report Type: 
  Country: None (occurrence: None)
  Receive Date: 20120504
  Receipt Date: 20120423
  Transmission Date: 20120825
  Serious: Yes (Hospitalization, Other)
  Sender: FDA-Public Use
  Company Number: PHHY2012BR034912

PATIENT
  Sex: Female
  Weight: 58 kg

DRUGS (5)
  1. ONBREZ [Suspect]
     Dosage: 150 UG, DAILY
  2. PHENOBARBITAL TAB [Concomitant]
     Indication: CONVULSION
     Dosage: 100 MG, 1 TABLET IN THE MORNING AND TABLET AT NIGHT
  3. EXFORGE [Suspect]
     Indication: HYPERTENSION
     Dosage: 1 DF (320/5 MG), DAILY
  4. FORMOTEROL FUMARATE [Suspect]
     Indication: EMPHYSEMA
     Dosage: 1 DF (12/400 MCG),1 INHALATION IN THE MORNING AND 1 INHALATION AT NIGHT
  5. FORMOTEROL FUMARATE [Suspect]
     Dosage: 1 DF (12/200 MCG),1 INHALATION IN THE MORNING AND 1 INHALATION AT NIGHT

REACTIONS (5)
  - RESPIRATORY DISORDER [None]
  - BRONCHOSPASM [None]
  - ASTHENIA [None]
  - OXYGEN SATURATION DECREASED [None]
  - COUGH [None]
